FAERS Safety Report 9645467 (Version 2)
Quarter: 2013Q4

REPORT INFORMATION
  Report Type: Spontaneous
  Country: US (occurrence: US)
  Receive Date: 20131025
  Receipt Date: 20131104
  Transmission Date: 20140711
  Serious: Yes (Death)
  Sender: FDA-Public Use
  Company Number: US-PFIZER INC-2013302470

PATIENT
  Age: 73 Year
  Sex: Male

DRUGS (1)
  1. VFEND [Suspect]
     Dosage: 200 MG, UNK
     Dates: start: 20130913

REACTIONS (2)
  - Central nervous system lymphoma [Fatal]
  - Disease progression [Fatal]
